FAERS Safety Report 11788082 (Version 2)
Quarter: 2016Q1

REPORT INFORMATION
  Report Type: Spontaneous
  Country: ES (occurrence: ES)
  Receive Date: 20151130
  Receipt Date: 20160119
  Transmission Date: 20160525
  Serious: Yes (Other)
  Sender: FDA-Public Use
  Company Number: ES-AMGEN-ESPSP2015112740

PATIENT
  Age: 59 Year
  Sex: Female

DRUGS (3)
  1. SALAZOPIRINA [Concomitant]
     Indication: ANKYLOSING SPONDYLITIS
     Dosage: 1 DF, 2X/DAY(1 DOSE FORMAT EVERY 12 HOURS )
  2. ENBREL [Suspect]
     Active Substance: ETANERCEPT
     Indication: ANKYLOSING SPONDYLITIS
     Dosage: 50 MG, WEEKLY
     Route: 058
     Dates: start: 20150728
  3. TRAMADOL HYDROCHLORIDE AND ACETAMINOPHEN [Concomitant]
     Active Substance: ACETAMINOPHEN\TRAMADOL HYDROCHLORIDE
     Indication: PAIN
     Dosage: 37.5 MG/325 MG, 3X/DAY

REACTIONS (3)
  - Drug ineffective [Recovering/Resolving]
  - Ankylosing spondylitis [Recovering/Resolving]
  - Condition aggravated [Recovering/Resolving]

NARRATIVE: CASE EVENT DATE: 2015
